FAERS Safety Report 9192319 (Version 2)
Quarter: 2013Q2

REPORT INFORMATION
  Report Type: Report from Study
  Country: US (occurrence: US)
  Receive Date: 20130327
  Receipt Date: 20130426
  Transmission Date: 20140414
  Serious: Yes (Death)
  Sender: FDA-Public Use
  Company Number: US-SANOFI-AVENTIS-2013SA031300

PATIENT
  Age: 63 Year
  Sex: Female
  Weight: 77.8 kg

DRUGS (12)
  1. LANTUS [Suspect]
     Indication: TYPE 2 DIABETES MELLITUS
     Dosage: DOSE:38 UNIT(S)
     Route: 058
     Dates: start: 20121002, end: 20130319
  2. BYETTA [Suspect]
     Indication: TYPE 2 DIABETES MELLITUS
     Dosage: 5MCG-AM,10MCG-PM
     Dates: start: 20121127, end: 20130318
  3. METFORMIN [Suspect]
     Indication: TYPE 2 DIABETES MELLITUS
     Dates: start: 20121002
  4. ACETAMINOPHEN [Concomitant]
     Indication: PAIN
     Dates: start: 20130314
  5. LOVASTATIN [Concomitant]
     Indication: HYPERLIPIDAEMIA
     Dates: start: 20110328
  6. GABAPENTIN [Concomitant]
     Indication: NEURALGIA
     Dates: start: 20111118
  7. DIAZEPAM [Concomitant]
     Indication: MUSCLE SPASMS
     Dosage: DOSE - UP TO 15 MG
     Dates: start: 20130314
  8. DOCUSATE SODIUM [Concomitant]
     Dates: start: 20130314
  9. LOPERAMIDE HCL [Concomitant]
     Dates: start: 20111018
  10. ONDANSETRON [Concomitant]
     Indication: PROPHYLAXIS OF NAUSEA AND VOMITING
     Dosage: DOSE - UP TO 12 MG
     Dates: start: 20130314
  11. OXYCODONE [Concomitant]
     Indication: PAIN
     Dosage: UP TO 40 MG
     Dates: start: 20130314
  12. SENNA [Concomitant]
     Indication: LAXATIVE SUPPORTIVE CARE
     Dosage: UP TO 19.2 MG
     Dates: start: 20130314

REACTIONS (3)
  - Death [Fatal]
  - Chest pain [Unknown]
  - Vomiting [Unknown]
